FAERS Safety Report 4558246-8 (Version None)
Quarter: 2005Q1

REPORT INFORMATION
  Report Type: 
  Country: None (occurrence: None)
  Receive Date: 20050121
  Receipt Date: 20050111
  Transmission Date: 20050727
  Serious: Yes (Hospitalization)
  Sender: FDA-Public Use
  Company Number: FR-BRISTOL-MYERS SQUIBB COMPANY-12821682

PATIENT
  Age: 25 Year
  Sex: Female

DRUGS (4)
  1. MYCOSTATIN [Suspect]
     Indication: VAGINAL CANDIDIASIS
     Route: 048
     Dates: start: 20040324, end: 20040328
  2. MYCOSTATINE VAGINAL TABS [Suspect]
     Indication: VAGINAL CANDIDIASIS
     Route: 067
     Dates: start: 20040324, end: 20040328
  3. DIPROSONE [Concomitant]
     Indication: ECZEMA
     Dates: start: 20040324, end: 20040328
  4. MYCOSTER [Concomitant]
     Indication: ECZEMA
     Dates: start: 20040324, end: 20040328

REACTIONS (4)
  - EXANTHEM [None]
  - PYREXIA [None]
  - RASH PUSTULAR [None]
  - TOXIC SKIN ERUPTION [None]
